FAERS Safety Report 4443854-5 (Version None)
Quarter: 2004Q3

REPORT INFORMATION
  Report Type: 
  Country: None (occurrence: None)
  Receive Date: 20040729
  Receipt Date: 20040224
  Transmission Date: 20050211
  Serious: Yes (Other)
  Sender: FDA-Public Use
  Company Number: US-JNJFOC-20040205768

PATIENT
  Age: 69 Year
  Sex: Male

DRUGS (4)
  1. RISPERDAL [Suspect]
     Indication: MANIA
     Dosage: 1 MG, 1 IN 1 DAY, ORAL
     Route: 048
     Dates: start: 20000701
  2. RISPERDAL [Suspect]
     Indication: SCHIZOPHRENIA, PARANOID TYPE
     Dosage: 1 MG, 1 IN 1 DAY, ORAL
     Route: 048
     Dates: start: 20000701
  3. EXELON [Concomitant]
  4. COUMADIN [Concomitant]

REACTIONS (2)
  - DEPRESSION [None]
  - TRANSIENT ISCHAEMIC ATTACK [None]
